FAERS Safety Report 8337811-6 (Version None)
Quarter: 2012Q2

REPORT INFORMATION
  Report Type: 
  Country: None (occurrence: None)
  Receive Date: 20120504
  Receipt Date: 20120427
  Transmission Date: 20120825
  Serious: Yes (Hospitalization)
  Sender: FDA-Public Use
  Company Number: JP-GLAXOSMITHKLINE-B0798833A

PATIENT
  Sex: Female
  Weight: 45 kg

DRUGS (5)
  1. LANSOPRAZOLE [Concomitant]
     Indication: PROPHYLAXIS
     Dosage: 30MG PER DAY
     Dates: start: 20110921
  2. PROMACTA [Suspect]
     Dosage: 25MG PER DAY
     Dates: start: 20111027, end: 20111215
  3. ZOSYN [Concomitant]
     Dosage: 13.5MG PER DAY
     Dates: start: 20110921, end: 20110927
  4. CIPROFLOXACIN [Concomitant]
     Dosage: 800MG PER DAY
     Route: 048
     Dates: start: 20110921, end: 20110925
  5. PROMACTA [Suspect]
     Indication: IDIOPATHIC THROMBOCYTOPENIC PURPURA
     Dosage: 12.5MG PER DAY
     Dates: start: 20110925, end: 20111026

REACTIONS (1)
  - RENAL IMPAIRMENT [None]
